FAERS Safety Report 21990518 (Version 3)
Quarter: 2023Q1

REPORT INFORMATION
  Report Type: Report from Study
  Country: BR (occurrence: BR)
  Receive Date: 20230214
  Receipt Date: 20230306
  Transmission Date: 20230417
  Serious: Yes (Death, Other)
  Sender: FDA-Public Use
  Company Number: BR-002147023-NVSC2023BR032109

PATIENT
  Sex: Female

DRUGS (3)
  1. KISQALI [Suspect]
     Active Substance: RIBOCICLIB
     Indication: Product used for unknown indication
     Dosage: UNK
     Route: 065
     Dates: start: 20220923, end: 20230213
  2. TRAMADOL [Concomitant]
     Active Substance: TRAMADOL
     Indication: Product used for unknown indication
     Dosage: UNK, QID (4 TIMES A DAY)
     Route: 065
  3. GABAPENTIN [Concomitant]
     Active Substance: GABAPENTIN
     Indication: Neuralgia
     Dosage: UNK, QID (4 TIMES A DAY))
     Route: 065

REACTIONS (13)
  - Death [Fatal]
  - Liver injury [Not Recovered/Not Resolved]
  - Renal failure [Unknown]
  - Metastasis [Not Recovered/Not Resolved]
  - Condition aggravated [Not Recovered/Not Resolved]
  - Eating disorder [Not Recovered/Not Resolved]
  - Tremor [Not Recovered/Not Resolved]
  - Jaundice [Not Recovered/Not Resolved]
  - Confusional state [Unknown]
  - Dysphagia [Not Recovered/Not Resolved]
  - Liver function test abnormal [Unknown]
  - Asthenia [Not Recovered/Not Resolved]
  - Therapy non-responder [Unknown]
